FAERS Safety Report 9855628 (Version 1)
Quarter: 2013Q4

REPORT INFORMATION
  Report Type: Spontaneous
  Country: US (occurrence: None)
  Receive Date: 20131226
  Receipt Date: 20131226
  Transmission Date: 20140711
  Serious: Yes (Other)
  Sender: FDA-Public Use
  Company Number: PHEH2012US024150

PATIENT
  Age: 60 Year
  Sex: Female

DRUGS (2)
  1. VIVELLE DOT (ESTRADIOL) TRANS-THERAPEUTIC-SYSTEM [Suspect]
     Indication: OESTROGEN REPLACEMENT THERAPY
     Dosage: QW2
     Route: 062
  2. PROGESTERONE [Suspect]

REACTIONS (4)
  - Depression [None]
  - Drug intolerance [None]
  - Back pain [None]
  - Nausea [None]
